FAERS Safety Report 25969968 (Version 1)
Quarter: 2025Q4

REPORT INFORMATION
  Report Type: Spontaneous
  Country: EU (occurrence: EU)
  Receive Date: 20251028
  Receipt Date: 20251028
  Transmission Date: 20260118
  Serious: Yes (Life-Threatening, Hospitalization, Other)
  Sender: SANDOZ
  Company Number: None

PATIENT
  Age: 65 Year
  Sex: Female
  Weight: 72 kg

DRUGS (2)
  1. HYDROCHLOROTHIAZIDE [Suspect]
     Active Substance: HYDROCHLOROTHIAZIDE
     Indication: Hypertension
     Dosage: 25 MG, QD (1D1 PIECE)
     Route: 048
     Dates: start: 20150101, end: 20250919
  2. VOLTAREN [Suspect]
     Active Substance: DICLOFENAC SODIUM
     Indication: Analgesic therapy
     Dosage: UNK, USED FREQUENTLY DAILY BY PT (EXTRA STRONG)
     Route: 003
     Dates: start: 20250815, end: 20250919

REACTIONS (1)
  - Tubulointerstitial nephritis [Recovering/Resolving]
